FAERS Safety Report 9012343 (Version 1)
Quarter: 2012Q4

REPORT INFORMATION
  Report Type: Spontaneous
  Country: IT (occurrence: None)
  Receive Date: 20121231
  Receipt Date: 20121231
  Transmission Date: 20130627
  Serious: Yes (Life-Threatening)
  Sender: FDA-Public Use
  Company Number: 2012-22963

PATIENT
  Age: 63 Year
  Sex: Female

DRUGS (1)
  1. METFORMIN [Suspect]
     Indication: DRUG USE FOR UNKNOWN INDICATION
     Route: 048
     Dates: start: 20120901, end: 20121114

REACTIONS (6)
  - Lactic acidosis [None]
  - Hypotension [None]
  - Hypothermia [None]
  - Coma [None]
  - Renal failure acute [None]
  - Sopor [None]
